FAERS Safety Report 5353912-9 (Version None)
Quarter: 2007Q2

REPORT INFORMATION
  Report Type: 
  Country: None (occurrence: None)
  Receive Date: 20070608
  Receipt Date: 20070608
  Transmission Date: 20071010
  Serious: Yes (Other)
  Sender: FDA-Public Use
  Company Number: None

PATIENT
  Age: 64 Year
  Sex: Male
  Weight: 141.9759 kg

DRUGS (1)
  1. BYETTA [Suspect]
     Indication: DIABETES MELLITUS
     Dosage: 5MCG DAILY SQ
     Route: 058
     Dates: start: 20070601, end: 20070603

REACTIONS (3)
  - BURNING SENSATION [None]
  - EYELID OEDEMA [None]
  - RASH [None]
